FAERS Safety Report 13676949 (Version 2)
Quarter: 2018Q2

REPORT INFORMATION
  Report Type: Other
  Country: CA (occurrence: CA)
  Receive Date: 20170622
  Receipt Date: 20180604
  Transmission Date: 20180711
  Serious: Yes (Other)
  Sender: FDA-Public Use
  Company Number: CA-APOTEX-2017AP013140

PATIENT
  Age: 32 Year
  Sex: Male

DRUGS (4)
  1. APO-MYCOPHENOLATE [Suspect]
     Active Substance: MYCOPHENOLIC ACID
     Indication: RENAL TRANSPLANT
     Route: 065
  2. TACROLIMUS. [Suspect]
     Active Substance: TACROLIMUS
     Indication: RENAL TRANSPLANT
     Route: 065
  3. APO-MYCOPHENOLATE [Suspect]
     Active Substance: MYCOPHENOLIC ACID
     Indication: PROPHYLAXIS AGAINST TRANSPLANT REJECTION
  4. TACROLIMUS. [Suspect]
     Active Substance: TACROLIMUS
     Indication: PROPHYLAXIS AGAINST TRANSPLANT REJECTION

REACTIONS (8)
  - VIth nerve paralysis [Unknown]
  - Ophthalmic herpes zoster [Unknown]
  - Arteritis [Unknown]
  - Cerebrovascular accident [Unknown]
  - IIIrd nerve paralysis [Unknown]
  - Keratitis [Unknown]
  - Cerebral infarction [Unknown]
  - Uveitis [Unknown]
